FAERS Safety Report 25770453 (Version 1)
Quarter: 2025Q3

REPORT INFORMATION
  Report Type: Spontaneous
  Country: US (occurrence: US)
  Receive Date: 20250908
  Receipt Date: 20250908
  Transmission Date: 20251021
  Serious: No
  Sender: AUROBINDO
  Company Number: US-AUROBINDO-AUR-APL-2024-042672

PATIENT
  Age: 71 Year
  Sex: Female
  Weight: 58.967 kg

DRUGS (1)
  1. ANASTROZOLE [Suspect]
     Active Substance: ANASTROZOLE
     Indication: Neoplasm malignant
     Dosage: UNK, ONCE A DAY
     Route: 065
     Dates: start: 20240611, end: 20240628

REACTIONS (4)
  - Anxiety [Not Recovered/Not Resolved]
  - Feeling jittery [Not Recovered/Not Resolved]
  - Tremor [Not Recovered/Not Resolved]
  - Therapy cessation [Unknown]
